FAERS Safety Report 17596024 (Version 2)
Quarter: 2024Q2

REPORT INFORMATION
  Report Type: Spontaneous
  Country: FI (occurrence: FI)
  Receive Date: 20200330
  Receipt Date: 20240417
  Transmission Date: 20240716
  Serious: Yes (Other)
  Sender: FDA-Public Use
  Company Number: FI-EMA-DD-20200317-BHARDWAJ_R-133422

PATIENT
  Sex: Female

DRUGS (4)
  1. LEVETIRACETAM [Suspect]
     Active Substance: LEVETIRACETAM
     Indication: Generalised tonic-clonic seizure
     Route: 065
  2. CLOBAZAM [Suspect]
     Active Substance: CLOBAZAM
     Indication: Severe myoclonic epilepsy of infancy
     Route: 065
  3. VALPROATE [Suspect]
     Active Substance: VALPROIC ACID
     Indication: Generalised tonic-clonic seizure
     Route: 065
  4. STIRIPENTOL [Suspect]
     Active Substance: STIRIPENTOL
     Indication: Severe myoclonic epilepsy of infancy
     Route: 065

REACTIONS (3)
  - Therapeutic product effect incomplete [Not Recovered/Not Resolved]
  - Status epilepticus [Recovered/Resolved]
  - Partial seizures [Unknown]
